FAERS Safety Report 25473167 (Version 1)
Quarter: 2025Q2

REPORT INFORMATION
  Report Type: Spontaneous
  Country: NL (occurrence: NL)
  Receive Date: 20250624
  Receipt Date: 20250624
  Transmission Date: 20250717
  Serious: Yes (Death, Hospitalization, Other)
  Sender: SANOFI AVENTIS
  Company Number: None

PATIENT
  Age: 61 Year
  Sex: Female

DRUGS (2)
  1. VANCOMYCIN [Suspect]
     Active Substance: VANCOMYCIN
     Indication: Fracture infection
  2. RIFAMPIN [Suspect]
     Active Substance: RIFAMPIN
     Indication: Fracture infection

REACTIONS (2)
  - Encephalitis herpes [Fatal]
  - Drug reaction with eosinophilia and systemic symptoms [Recovered/Resolved]
